FAERS Safety Report 5989104-X (Version None)
Quarter: 2008Q4

REPORT INFORMATION
  Report Type: 
  Country: None (occurrence: None)
  Receive Date: 20081210
  Receipt Date: 20081201
  Transmission Date: 20090506
  Serious: Yes (Other)
  Sender: FDA-Public Use
  Company Number: US-JNJFOC-20081200727

PATIENT
  Age: 76 Year
  Sex: Male
  Weight: 74.84 kg

DRUGS (15)
  1. IMODIUM MULTI-SYMPTOM RELIEF [Suspect]
     Indication: DIARRHOEA
     Route: 048
  2. IMODIUM MULTI-SYMPTOM RELIEF [Suspect]
     Indication: FLATULENCE
     Dosage: AT 1000
     Route: 048
  3. IMODIUM MULTI-SYMPTOM RELIEF [Suspect]
     Dosage: AT 0200
     Route: 048
  4. IMODIUM MULTI-SYMPTOM RELIEF [Suspect]
     Route: 048
  5. DILTIAZEM [Concomitant]
     Indication: CARDIAC DISORDER
  6. ASPIRIN [Concomitant]
     Indication: CARDIAC DISORDER
  7. ISOSORBIDE [Concomitant]
     Indication: CARDIAC DISORDER
  8. CYCLOBENZAPRINE HCL [Concomitant]
     Indication: MUSCLE RELAXANT THERAPY
     Dosage: ONE CAPLET DAILY
  9. HYDROCODONE BITARTRATE [Concomitant]
     Indication: PAIN
     Dosage: ^7/500MG^ CAPLETS
  10. ZOCOR [Concomitant]
     Indication: BLOOD CHOLESTEROL INCREASED
  11. WELLBUTRIN [Concomitant]
     Indication: NERVOUSNESS
  12. NEXIUM [Concomitant]
     Indication: DYSPEPSIA
  13. ATENOLOL [Concomitant]
     Indication: HYPERTENSION
  14. PLAVIX [Concomitant]
     Indication: ANTICOAGULANT THERAPY
  15. FLOMAX [Concomitant]
     Indication: PROSTATIC DISORDER

REACTIONS (2)
  - DRUG INEFFECTIVE [None]
  - HAEMATOCHEZIA [None]
